FAERS Safety Report 7916070-X (Version None)
Quarter: 2011Q4

REPORT INFORMATION
  Report Type: 
  Country: None (occurrence: None)
  Receive Date: 20111115
  Receipt Date: 20100901
  Transmission Date: 20120403
  Serious: Yes (Hospitalization, Other)
  Sender: FDA-Public Use
  Company Number: PHHY2010TW57848

PATIENT
  Sex: Male

DRUGS (2)
  1. GLEEVEC [Suspect]
     Indication: CHRONIC MYELOID LEUKAEMIA
     Dosage: 400 MG
     Route: 048
     Dates: start: 20100129
  2. GLEEVEC [Suspect]
     Dosage: 300 MG

REACTIONS (4)
  - HAEMORRHOIDS [None]
  - DIZZINESS [None]
  - HAEMOGLOBIN DECREASED [None]
  - URINARY INCONTINENCE [None]
